FAERS Safety Report 17116396 (Version 1)
Quarter: 2019Q4

REPORT INFORMATION
  Report Type: Spontaneous
  Country: ES (occurrence: ES)
  Receive Date: 20191205
  Receipt Date: 20191205
  Transmission Date: 20200122
  Serious: Yes (Life-Threatening, Hospitalization)
  Sender: FDA-Public Use
  Company Number: ES-MYLANLABS-2019M1118963

PATIENT
  Age: 20 Year
  Sex: Female

DRUGS (7)
  1. OXITOCINA [Suspect]
     Active Substance: OXYTOCIN
     Indication: UTERINE ATONY
     Dosage: 53 INTERNATIONAL UNIT, QD
     Route: 042
     Dates: start: 20190603, end: 20190603
  2. VOLUVEN [Concomitant]
     Active Substance: HYDROXYETHYL STARCH 130/0.4
     Indication: UTERINE ATONY
     Dosage: UNK
     Route: 042
     Dates: start: 20190603, end: 20190603
  3. AMCHAFIBRIN 500 MG SOLUCI?N INYECTABLE [Suspect]
     Active Substance: TRANEXAMIC ACID
     Indication: UTERINE ATONY
     Dosage: 1000 MILLIGRAM, QD
     Route: 042
     Dates: start: 20190603, end: 20190603
  4. INIBSACAIN [Concomitant]
     Active Substance: BUPIVACAINE HYDROCHLORIDE
     Indication: EPIDURAL ANALGESIA
     Dosage: UNK
     Route: 065
     Dates: start: 20190603, end: 20190603
  5. MISOFAR [Concomitant]
     Indication: LABOUR INDUCTION
     Dosage: 25 MICROGRAM
     Route: 067
     Dates: start: 20190603, end: 20190603
  6. CYTOTEC [Suspect]
     Active Substance: MISOPROSTOL
     Indication: UTERINE ATONY
     Dosage: 400 MICROGRAM, QD
     Route: 054
     Dates: start: 20190603, end: 20190603
  7. METHERGIN [Suspect]
     Active Substance: METHYLERGONOVINE MALEATE
     Indication: UTERINE ATONY
     Dosage: 0.2 MILLIGRAM, QD
     Route: 030
     Dates: start: 20190603, end: 20190603

REACTIONS (3)
  - Seizure [Recovered/Resolved]
  - Depressed level of consciousness [Recovered/Resolved]
  - Respiratory failure [Recovered/Resolved]

NARRATIVE: CASE EVENT DATE: 20190603
